FAERS Safety Report 19001179 (Version 4)
Quarter: 2021Q1

REPORT INFORMATION
  Report Type: Spontaneous
  Country: PL (occurrence: PL)
  Receive Date: 20210311
  Receipt Date: 20210325
  Transmission Date: 20210420
  Serious: Yes (Hospitalization, Other)
  Sender: FDA-Public Use
  Company Number: PL-CELLTRION INC.-2021PL002990

PATIENT

DRUGS (5)
  1. RITUXIMAB (UNKNOWN) [Suspect]
     Active Substance: RITUXIMAB
     Indication: SYSTEMIC LUPUS ERYTHEMATOSUS
     Dosage: UNK
     Route: 065
     Dates: start: 2020
  2. RITUXIMAB (UNKNOWN) [Suspect]
     Active Substance: RITUXIMAB
     Dosage: UNK UNK, TIW (EVERY 3 WEEKS)
     Route: 065
  3. RITUXIMAB (UNKNOWN) [Suspect]
     Active Substance: RITUXIMAB
     Dosage: THE PATIENT HAD RECEIVED RITUXIMAB EVERY 3 WEEKS FOR 2 MONTHS/SINCE 2 MONTHS, DUE TO DISEASE EXACERB
  4. METAMIZOLE [Suspect]
     Active Substance: METAMIZOLE
     Indication: HEADACHE
     Dosage: UNK
     Route: 065
     Dates: start: 202003
  5. METAMIZOLE [Suspect]
     Active Substance: METAMIZOLE
     Indication: MYALGIA
     Dosage: SELF?TREATMENT WITH METAMIZOLE FOR 3 DAYS/SINCE 3 DAYS, WITHOUT CONSULTING HER DOCTOR

REACTIONS (6)
  - Leukopenia [Unknown]
  - Agranulocytosis [Unknown]
  - Prescription drug used without a prescription [Unknown]
  - Neutropenia [Unknown]
  - Off label use [Unknown]
  - Product use in unapproved indication [Unknown]

NARRATIVE: CASE EVENT DATE: 202003
